FAERS Safety Report 4629489-X (Version None)
Quarter: 2005Q2

REPORT INFORMATION
  Report Type: 
  Country: None (occurrence: None)
  Receive Date: 20050405
  Receipt Date: 20050404
  Transmission Date: 20051028
  Serious: Yes (Hospitalization)
  Sender: FDA-Public Use
  Company Number: E044-318-3735

PATIENT
  Age: 80 Year
  Sex: Male
  Weight: 78 kg

DRUGS (12)
  1. DONEPEZIL HCL [Suspect]
     Indication: DEMENTIA
     Dosage: SEE IMAGE
     Route: 048
     Dates: start: 20041116, end: 20041214
  2. DONEPEZIL HCL [Suspect]
     Indication: PARKINSON'S DISEASE
     Dosage: SEE IMAGE
     Route: 048
     Dates: start: 20041116, end: 20041214
  3. DONEPEZIL HCL [Suspect]
     Indication: DEMENTIA
     Dosage: SEE IMAGE
     Route: 048
     Dates: start: 20041215
  4. DONEPEZIL HCL [Suspect]
     Indication: PARKINSON'S DISEASE
     Dosage: SEE IMAGE
     Route: 048
     Dates: start: 20041215
  5. DONEPEZIL HCL [Suspect]
     Indication: DEMENTIA
     Dosage: DOUBLE BLIND, 1 IN 1 D, ORAL
     Route: 048
     Dates: start: 20040513, end: 20041115
  6. DONEPEZIL HCL [Suspect]
     Indication: PARKINSON'S DISEASE
     Dosage: DOUBLE BLIND, 1 IN 1 D, ORAL
     Route: 048
     Dates: start: 20040513, end: 20041115
  7. CEFIXIM (CEFIXIME) [Suspect]
     Indication: LYMPHADENITIS
     Dosage: 400 MG, ORAL
     Route: 048
     Dates: start: 20050303, end: 20050312
  8. LEVODOPA AND BENSARAZID (MADOPAR) [Concomitant]
  9. LEVODOPA AND CARBIDOPA (SINEMET) [Concomitant]
  10. ENTACAPON (ENTACAPONE) [Concomitant]
  11. CLOMETHIAZOL (CLOMETHIAZOLE) [Concomitant]
  12. QUETIAPIN (QUETIAPINE) [Concomitant]

REACTIONS (5)
  - AKINESIA [None]
  - DISEASE PROGRESSION [None]
  - JUGULAR VEIN THROMBOSIS [None]
  - LYMPHADENITIS [None]
  - SUBCLAVIAN VEIN THROMBOSIS [None]
